FAERS Safety Report 19928569 (Version 1)
Quarter: 2021Q4

REPORT INFORMATION
  Report Type: Spontaneous
  Country: US (occurrence: US)
  Receive Date: 20211006
  Receipt Date: 20211006
  Transmission Date: 20220304
  Serious: Yes (Death, Hospitalization)
  Sender: FDA-Public Use
  Company Number: None

PATIENT
  Age: 76 Year
  Sex: Female
  Weight: 49 kg

DRUGS (2)
  1. PEMBROLIZUMAB [Suspect]
     Active Substance: PEMBROLIZUMAB
     Dates: end: 20210827
  2. ALIMTA [Suspect]
     Active Substance: PEMETREXED DISODIUM
     Dates: end: 20210827

REACTIONS (6)
  - Hypoxia [None]
  - Oesophagitis [None]
  - Cytomegalovirus viraemia [None]
  - Respiratory failure [None]
  - Weight decreased [None]
  - Herpes simplex viraemia [None]

NARRATIVE: CASE EVENT DATE: 20210926
